FAERS Safety Report 6209840-X (Version None)
Quarter: 2009Q2

REPORT INFORMATION
  Report Type: 
  Country: None (occurrence: None)
  Receive Date: 20090601
  Receipt Date: 20090527
  Transmission Date: 20091009
  Serious: Yes (Other)
  Sender: FDA-Public Use
  Company Number: US-JNJFOC-20090506811

PATIENT
  Age: 26 Year
  Sex: Female

DRUGS (2)
  1. TOPIRAMATE [Suspect]
     Route: 065
  2. TOPIRAMATE [Suspect]
     Indication: DRUG USE FOR UNKNOWN INDICATION
     Route: 065

REACTIONS (3)
  - ANGLE CLOSURE GLAUCOMA [None]
  - EYELID OEDEMA [None]
  - SOMNOLENCE [None]
